FAERS Safety Report 8055541-5 (Version None)
Quarter: 2012Q1

REPORT INFORMATION
  Report Type: 
  Country: None (occurrence: None)
  Receive Date: 20120119
  Receipt Date: 20120116
  Transmission Date: 20120608
  Serious: Yes (Other)
  Sender: FDA-Public Use
  Company Number: US-BAYER-2011-028606

PATIENT
  Age: 34 Year
  Sex: Female
  Weight: 67.12 kg

DRUGS (3)
  1. MIRENA [Suspect]
     Indication: CONTRACEPTION
     Dosage: 20 MCG/24HR, CONT
     Route: 015
     Dates: start: 20060510, end: 20110216
  2. MIRENA [Suspect]
     Dosage: 20 MCG/24HR, CONT
     Route: 015
     Dates: start: 20110216
  3. ACETAMINOPHEN [Concomitant]
     Indication: HEADACHE
     Dosage: 325 MG, PRN

REACTIONS (4)
  - PREGNANCY WITH CONTRACEPTIVE DEVICE [None]
  - PELVIC PAIN [None]
  - HAEMORRHAGE IN PREGNANCY [None]
  - DEVICE EXPULSION [None]
